FAERS Safety Report 5032675-0 (Version None)
Quarter: 2006Q2

REPORT INFORMATION
  Report Type: 
  Country: None (occurrence: None)
  Receive Date: 20060515
  Receipt Date: 20060120
  Transmission Date: 20061013
  Serious: No
  Sender: FDA-Public Use
  Company Number: S06-USA-00309-01

PATIENT
  Age: 84 Year
  Sex: Female

DRUGS (10)
  1. NAMENDA [Suspect]
     Indication: DEMENTIA
     Dosage: 15 MG QD PO
     Route: 048
     Dates: start: 20051216, end: 20051223
  2. NAMENDA [Suspect]
     Indication: DEMENTIA
     Dosage: 5 MG QD PO
     Route: 048
     Dates: start: 20051209, end: 20051215
  3. ARICEPT [Concomitant]
  4. PLAVIX [Concomitant]
  5. VASOTEC [Concomitant]
  6. LODINE [Concomitant]
  7. DETROL [Concomitant]
  8. XANAX [Concomitant]
  9. ASPIRIN [Concomitant]
  10. FOSAMAX [Concomitant]

REACTIONS (2)
  - DIZZINESS [None]
  - VISION BLURRED [None]
